FAERS Safety Report 21916076 (Version 1)
Quarter: 2023Q1

REPORT INFORMATION
  Report Type: Report from Study
  Country: IT (occurrence: IT)
  Receive Date: 20230126
  Receipt Date: 20230126
  Transmission Date: 20230417
  Serious: Yes (Other)
  Sender: FDA-Public Use
  Company Number: None

PATIENT
  Age: 57 Year
  Sex: Female
  Weight: 57 kg

DRUGS (1)
  1. PACLITAXEL [Suspect]
     Active Substance: PACLITAXEL
     Indication: Breast cancer
     Dosage: DOSAGE: 125 UNIT OF MEASUREMENT: MILLIGRAMS
     Route: 065

REACTIONS (2)
  - Anaemia [Not Recovered/Not Resolved]
  - Gingivitis [Recovering/Resolving]

NARRATIVE: CASE EVENT DATE: 20220926
